FAERS Safety Report 21515728 (Version 1)
Quarter: 2022Q4

REPORT INFORMATION
  Report Type: Spontaneous
  Country: US (occurrence: US)
  Receive Date: 20221027
  Receipt Date: 20221027
  Transmission Date: 20230113
  Serious: Yes (Death)
  Sender: FDA-Public Use
  Company Number: US-PFIZER INC-202201233483

PATIENT
  Age: 55 Year
  Sex: Male

DRUGS (3)
  1. FENTANYL CITRATE [Suspect]
     Active Substance: FENTANYL CITRATE
     Dosage: UNK
  2. METHAMPHETAMINE HYDROCHLORIDE [Suspect]
     Active Substance: METHAMPHETAMINE HYDROCHLORIDE
     Dosage: UNK
  3. HEROIN [Suspect]
     Active Substance: DIAMORPHINE
     Dosage: UNK

REACTIONS (2)
  - Overdose [Fatal]
  - Toxicity to various agents [Fatal]
